FAERS Safety Report 7450618-7 (Version None)
Quarter: 2011Q2

REPORT INFORMATION
  Report Type: 
  Country: None (occurrence: None)
  Receive Date: 20110502
  Receipt Date: 20110419
  Transmission Date: 20111010
  Serious: Yes (Hospitalization)
  Sender: FDA-Public Use
  Company Number: US-ELI_LILLY_AND_COMPANY-US201104006975

PATIENT
  Sex: Female

DRUGS (12)
  1. XANAX [Concomitant]
  2. PREDNISONE [Concomitant]
  3. FORTEO [Suspect]
     Indication: OSTEOPOROSIS
     Dosage: 20 UG, QD
     Dates: start: 20101201
  4. SINGULAIR [Concomitant]
  5. AVELOX [Concomitant]
  6. CLARITIN [Concomitant]
  7. FLONASE [Concomitant]
  8. SPIRIVA [Concomitant]
  9. ADVAIR DISKUS 100/50 [Concomitant]
  10. TOPROL-XL [Concomitant]
  11. PRAVASTATIN [Concomitant]
  12. ENALAPRIL MALEATE [Concomitant]

REACTIONS (4)
  - CHRONIC OBSTRUCTIVE PULMONARY DISEASE [None]
  - DYSPNOEA [None]
  - BLOOD GLUCOSE INCREASED [None]
  - BLOOD GLUCOSE DECREASED [None]
